FAERS Safety Report 18524674 (Version 1)
Quarter: 2020Q4

REPORT INFORMATION
  Report Type: Spontaneous
  Country: AU (occurrence: AU)
  Receive Date: 20201120
  Receipt Date: 20201120
  Transmission Date: 20210114
  Serious: Yes (Other)
  Sender: FDA-Public Use
  Company Number: AU-SUN PHARMACEUTICAL INDUSTRIES LTD-2020R1-268231

PATIENT
  Age: 21 Year
  Sex: Female

DRUGS (7)
  1. MYCOPHENOLATE MOFETIL. [Suspect]
     Active Substance: MYCOPHENOLATE MOFETIL
     Indication: PROGRESSIVE FACIAL HEMIATROPHY
     Dosage: 1 GRAM, BID
     Route: 065
  2. METHOTREXATE. [Suspect]
     Active Substance: METHOTREXATE
     Indication: PROGRESSIVE FACIAL HEMIATROPHY
     Dosage: 5 TO 20MG, WEEKLY
     Route: 065
  3. CYCLOSPORINE. [Concomitant]
     Active Substance: CYCLOSPORINE
     Indication: PROGRESSIVE FACIAL HEMIATROPHY
     Dosage: 100 MILLIGRAM, BID
     Route: 065
  4. AZATHIOPRINE. [Concomitant]
     Active Substance: AZATHIOPRINE
     Indication: PROGRESSIVE FACIAL HEMIATROPHY
     Dosage: 150 MILLIGRAM, DAILY
     Route: 065
  5. PREDNISONE. [Suspect]
     Active Substance: PREDNISONE
     Dosage: 25 MILLIGRAM, DAILY
     Route: 048
  6. HYDROXYCHLOROQUINE [Suspect]
     Active Substance: HYDROXYCHLOROQUINE
     Indication: PROGRESSIVE FACIAL HEMIATROPHY
     Dosage: 200 MILLIGRAM, DAILY
     Route: 065
  7. PREDNISONE. [Suspect]
     Active Substance: PREDNISONE
     Indication: PROGRESSIVE FACIAL HEMIATROPHY
     Dosage: 37.5 TO 75 MG, DAILY
     Route: 048

REACTIONS (6)
  - Bone density decreased [Unknown]
  - Drug ineffective [Unknown]
  - Tinnitus [Unknown]
  - Weight increased [Unknown]
  - Chronic hepatitis [Unknown]
  - Acanthosis nigricans [Unknown]
